FAERS Safety Report 16992615 (Version 1)
Quarter: 2019Q4

REPORT INFORMATION
  Report Type: Spontaneous
  Country: US (occurrence: US)
  Receive Date: 20191105
  Receipt Date: 20191105
  Transmission Date: 20200122
  Serious: Yes (Other)
  Sender: FDA-Public Use
  Company Number: US-ROCHE-2454257

PATIENT
  Age: 36 Year
  Sex: Female
  Weight: 60.38 kg

DRUGS (6)
  1. OXYCODONE [Concomitant]
     Active Substance: OXYCODONE
     Route: 065
  2. SULFACETAMIDE. [Concomitant]
     Active Substance: SULFACETAMIDE
     Dosage: ONGOING: YES
     Route: 061
  3. TRILEPTAL [Concomitant]
     Active Substance: OXCARBAZEPINE
     Indication: NEURALGIA
     Dosage: ONGOING: YES
     Route: 065
  4. TRILEPTAL [Concomitant]
     Active Substance: OXCARBAZEPINE
     Indication: SEIZURE
  5. GABAPENTIN. [Concomitant]
     Active Substance: GABAPENTIN
     Indication: NEURALGIA
     Dosage: ONGOING: YES
     Route: 065
  6. OCREVUS [Suspect]
     Active Substance: OCRELIZUMAB
     Indication: RELAPSING-REMITTING MULTIPLE SCLEROSIS
     Dosage: ONGOING: YES
     Route: 042
     Dates: start: 20180717

REACTIONS (2)
  - Depression [Unknown]
  - Pneumonia [Not Recovered/Not Resolved]

NARRATIVE: CASE EVENT DATE: 201910
